FAERS Safety Report 9749103 (Version 2)
Quarter: 2013Q4

REPORT INFORMATION
  Report Type: Spontaneous
  Country: US (occurrence: US)
  Receive Date: 20131212
  Receipt Date: 20131212
  Transmission Date: 20140711
  Serious: Yes (Other)
  Sender: FDA-Public Use
  Company Number: US-TEVA-391720USA

PATIENT
  Age: 27 Year
  Sex: Female
  Weight: 85.81 kg

DRUGS (3)
  1. PARAGARD 380A [Suspect]
     Indication: CONTRACEPTION
     Route: 015
     Dates: start: 20130306, end: 20130313
  2. METOPROLOL [Concomitant]
     Indication: HYPERTENSION
     Dosage: 25 MILLIGRAM DAILY;
  3. METOPROLOL [Concomitant]
     Indication: ARRHYTHMIA

REACTIONS (4)
  - Device dislocation [Recovered/Resolved]
  - Uterine spasm [Recovered/Resolved with Sequelae]
  - Metrorrhagia [Recovered/Resolved]
  - Pelvic pain [Recovered/Resolved]
